FAERS Safety Report 9191144 (Version 1)
Quarter: 2013Q1

REPORT INFORMATION
  Report Type: Spontaneous
  Country: US (occurrence: US)
  Receive Date: 20130326
  Receipt Date: 20130326
  Transmission Date: 20140127
  Serious: Yes (Other)
  Sender: FDA-Public Use
  Company Number: US-WATSON-2013-05081

PATIENT
  Sex: Female
  Weight: 82 kg

DRUGS (1)
  1. HYDROCODONE + ACETAMINOPHEN [Suspect]
     Indication: SPINAL PAIN
     Dosage: 1 TABET 4 X/DAY
     Route: 048
     Dates: start: 2010, end: 20130207

REACTIONS (3)
  - Suicidal ideation [Not Recovered/Not Resolved]
  - Depressed mood [Not Recovered/Not Resolved]
  - Mania [Not Recovered/Not Resolved]
